FAERS Safety Report 24896466 (Version 1)
Quarter: 2025Q1

REPORT INFORMATION
  Report Type: Spontaneous
  Country: US (occurrence: US)
  Receive Date: 20250128
  Receipt Date: 20250128
  Transmission Date: 20250409
  Serious: No
  Sender: SANOFI AVENTIS
  Company Number: US-SA-2025SA024810

PATIENT
  Sex: Female
  Weight: 86.36 kg

DRUGS (4)
  1. DUPIXENT [Suspect]
     Active Substance: DUPILUMAB
     Indication: Dermatitis atopic
     Dosage: 300 MG, QOW
     Route: 058
  2. PROBIOTIC COMPLEX [Concomitant]
  3. FISH OIL [Concomitant]
     Active Substance: FISH OIL
  4. TRIAMCINOLONE ACETONIDE [Concomitant]
     Active Substance: TRIAMCINOLONE ACETONIDE

REACTIONS (4)
  - Eczema [Recovered/Resolved]
  - Eye disorder [Recovered/Resolved]
  - Skin exfoliation [Recovered/Resolved]
  - Drug ineffective [Unknown]
